FAERS Safety Report 7777218-3 (Version None)
Quarter: 2011Q3

REPORT INFORMATION
  Report Type: 
  Country: None (occurrence: None)
  Receive Date: 20110926
  Receipt Date: 20110913
  Transmission Date: 20111222
  Serious: Yes (Hospitalization)
  Sender: FDA-Public Use
  Company Number: PHHY2010NO36746

PATIENT
  Sex: Male
  Weight: 18.6 kg

DRUGS (7)
  1. PNEUMOVAX 23 [Concomitant]
     Indication: IMMUNISATION
     Dosage: 25 UG, UNK
     Dates: start: 20100525, end: 20100526
  2. PENICILLIN [Concomitant]
     Indication: DEPENDENT RUBOR
  3. ILARIS [Suspect]
     Indication: CHRONIC INFANTILE NEUROLOGICAL CUTANEOUS AND ARTICULAR SYNDROME
     Dosage: 37.5 MG EVERY 8 WEEKS
     Route: 058
     Dates: start: 20100215
  4. PENICILLIN [Concomitant]
     Indication: SWELLING
     Dosage: UNK
     Dates: start: 20100527
  5. PENICILLIN [Concomitant]
     Indication: PYREXIA
  6. ILARIS [Suspect]
     Indication: CRYOPYRIN ASSOCIATED PERIODIC SYNDROME
  7. DICLOXACILLIN [Concomitant]
     Indication: ERYSIPELAS
     Dosage: UNK
     Dates: start: 20100530

REACTIONS (5)
  - INJECTION SITE ERYTHEMA [None]
  - PAIN IN EXTREMITY [None]
  - ERYSIPELAS [None]
  - INJECTION SITE SWELLING [None]
  - PYREXIA [None]
